FAERS Safety Report 15326424 (Version 1)
Quarter: 2018Q4

REPORT INFORMATION
  Report Type: Report from Study
  Country: GB (occurrence: GB)
  Receive Date: 20180828
  Receipt Date: 20180828
  Transmission Date: 20190204
  Serious: Yes (Life-Threatening, Hospitalization)
  Sender: FDA-Public Use
  Company Number: GB-HERITAGE PHARMACEUTICALS-2018HTG00194

PATIENT
  Age: 75 Year
  Sex: Male
  Weight: 85.5 kg

DRUGS (7)
  1. DONEPEZIL. [Concomitant]
     Active Substance: DONEPEZIL
  2. AMLODIPINE [Concomitant]
     Active Substance: AMLODIPINE BESYLATE
  3. DOXAZOSIN [Suspect]
     Active Substance: DOXAZOSIN\DOXAZOSIN MESYLATE
     Dosage: 2 MG, 1X/DAY
     Route: 048
     Dates: end: 20180721
  4. BENDROFLUMETHIAZIDE [Suspect]
     Active Substance: BENDROFLUMETHIAZIDE
     Dosage: 2.5 MG, 1X/DAY
     Route: 048
     Dates: end: 20180721
  5. LOSARTAN POTASSIUM. [Suspect]
     Active Substance: LOSARTAN POTASSIUM
     Dosage: 100 MG, 1X/DAY
     Route: 048
     Dates: end: 20180721
  6. SIMVASTATIN. [Concomitant]
     Active Substance: SIMVASTATIN
  7. ELENBECESTAT (BLINDED) [Suspect]
     Active Substance: ELENBECESTAT
     Indication: DEMENTIA ALZHEIMER^S TYPE
     Dosage: 50 MG OR PLACEBO, 1 X/DAY
     Route: 048
     Dates: start: 20180619, end: 20180717

REACTIONS (16)
  - Feeling cold [Unknown]
  - Pyrexia [Unknown]
  - Feeling abnormal [Unknown]
  - Lethargy [Unknown]
  - Hypotension [Unknown]
  - Malaise [Unknown]
  - Liver function test increased [Not Recovered/Not Resolved]
  - Rash papular [Recovered/Resolved]
  - Rash maculo-papular [Recovered/Resolved]
  - Somnolence [Unknown]
  - Tremor [Unknown]
  - Acute kidney injury [Recovering/Resolving]
  - Decreased appetite [Recovered/Resolved]
  - Rash macular [Recovered/Resolved]
  - Nausea [Unknown]
  - Hyperhidrosis [Unknown]

NARRATIVE: CASE EVENT DATE: 20180713
